FAERS Safety Report 7383258-9 (Version None)
Quarter: 2011Q1

REPORT INFORMATION
  Report Type: 
  Country: None (occurrence: None)
  Receive Date: 20110325
  Receipt Date: 20110325
  Transmission Date: 20110831
  Serious: Yes (Hospitalization)
  Sender: FDA-Public Use
  Company Number: None

PATIENT
  Age: 96 Year
  Sex: Female
  Weight: 50 kg

DRUGS (6)
  1. LUMIGAN [Concomitant]
  2. BRIMONIDINE/TIMOLOL [Concomitant]
  3. RESTASIS [Concomitant]
  4. PILOCARPINE [Concomitant]
  5. JANUMET [Concomitant]
  6. METHAZOLAMIDE [Suspect]
     Indication: GLAUCOMA
     Dosage: 50MG BID PO  CHRONIC
     Route: 048

REACTIONS (4)
  - METABOLIC ACIDOSIS [None]
  - HUMERUS FRACTURE [None]
  - HYPERTENSION [None]
  - HYPERGLYCAEMIA [None]
